FAERS Safety Report 7206171-6 (Version None)
Quarter: 2010Q4

REPORT INFORMATION
  Report Type: 
  Country: None (occurrence: None)
  Receive Date: 20101229
  Receipt Date: 20101229
  Transmission Date: 20110411
  Serious: Yes (Other)
  Sender: FDA-Public Use
  Company Number: None

PATIENT
  Age: 29 Year
  Sex: Male
  Weight: 62.1428 kg

DRUGS (1)
  1. BENICAR [Suspect]
     Indication: BLOOD PRESSURE
     Dosage: 40 MG ONCE A DAY ORAL
     Route: 048
     Dates: start: 20060721, end: 20101203

REACTIONS (6)
  - DRUG INEFFECTIVE [None]
  - PRODUCT COUNTERFEIT [None]
  - PRODUCT ODOUR ABNORMAL [None]
  - PRODUCT QUALITY ISSUE [None]
  - PRODUCT SUBSTITUTION ISSUE [None]
  - PRODUCT TASTE ABNORMAL [None]
